FAERS Safety Report 4821331-7 (Version None)
Quarter: 2005Q4

REPORT INFORMATION
  Report Type: 
  Country: None (occurrence: None)
  Receive Date: 20051107
  Receipt Date: 20050830
  Transmission Date: 20060501
  Serious: No
  Sender: FDA-Public Use
  Company Number: US-GLAXOSMITHKLINE-A0572409A

PATIENT
  Age: 67 Year
  Sex: Female

DRUGS (8)
  1. METFORMIN HCL [Suspect]
     Indication: DRUG USE FOR UNKNOWN INDICATION
     Route: 065
  2. AVANDAMET [Suspect]
     Dosage: 1TAB TWICE PER DAY
     Route: 048
     Dates: start: 20050821
  3. GLUCOTIDE [Concomitant]
  4. DILTIAZEM HCL [Concomitant]
  5. CARDURA [Concomitant]
  6. QUINAPRIL [Concomitant]
  7. HYDROCHLOROTHIAZIDE [Concomitant]
  8. LEVOXYL [Concomitant]

REACTIONS (1)
  - DIARRHOEA [None]
